FAERS Safety Report 9196354 (Version 1)
Quarter: 2013Q1

REPORT INFORMATION
  Report Type: Spontaneous
  Country: FR (occurrence: FR)
  Receive Date: 20130328
  Receipt Date: 20130328
  Transmission Date: 20140127
  Serious: Yes (Hospitalization, Other)
  Sender: FDA-Public Use
  Company Number: FR-PFIZER INC-2013092561

PATIENT
  Age: 76 Year
  Sex: Male

DRUGS (12)
  1. REVATIO [Suspect]
     Indication: PULMONARY ARTERIAL HYPERTENSION
     Dosage: 20 MG, 3X/DAY
     Route: 048
     Dates: start: 20110729, end: 20110808
  2. DAFALGAN [Concomitant]
     Route: 048
  3. TENORMINE [Concomitant]
     Indication: HYPERTENSION
     Dosage: 50 MG, 1X/DAY
     Route: 048
     Dates: end: 20110809
  4. MODIODAL [Concomitant]
     Dosage: 100 MG, 1X/DAY
     Route: 048
     Dates: end: 20110810
  5. ATARAX [Concomitant]
     Dosage: 25 MG, 1X/DAY
     Route: 048
     Dates: end: 20110810
  6. EFFEXOR [Concomitant]
     Indication: DEPRESSION
     Dosage: 75 MG, 1X/DAY
     Route: 048
     Dates: end: 20110808
  7. INEGY [Concomitant]
     Indication: HYPERCHOLESTEROLAEMIA
     Dosage: 1 DF, 1X/DAY
     Route: 048
  8. APROVEL [Concomitant]
     Indication: HYPERTENSION
     Dosage: 150 MG, 1X/DAY
     Route: 048
  9. INIPOMP [Concomitant]
     Dosage: 40 MG, 1X/DAY
     Route: 048
  10. KARDEGIC [Concomitant]
     Dosage: 75 MG, 1X/DAY
     Route: 048
  11. PLAVIX [Concomitant]
     Dosage: 75 MG, 1X/DAY
     Route: 048
  12. PREVISCAN [Concomitant]
     Dosage: 10 MG, 1X/DAY
     Route: 048

REACTIONS (4)
  - Confusional state [Recovered/Resolved]
  - Agitation [Recovered/Resolved]
  - Somnolence [Recovered/Resolved]
  - Fall [Recovered/Resolved]
